FAERS Safety Report 5502370-X (Version None)
Quarter: 2007Q4

REPORT INFORMATION
  Report Type: 
  Country: None (occurrence: None)
  Receive Date: 20071030
  Receipt Date: 20071018
  Transmission Date: 20080405
  Serious: Yes (Other)
  Sender: FDA-Public Use
  Company Number: US-GENENTECH-249867

PATIENT
  Sex: Male
  Weight: 101.6 kg

DRUGS (1)
  1. AVASTIN [Suspect]
     Indication: COLON CANCER
     Dosage: 550 MG, Q3W
     Route: 042
     Dates: start: 20060911

REACTIONS (1)
  - IDIOPATHIC THROMBOCYTOPENIC PURPURA [None]
